FAERS Safety Report 16146803 (Version 1)
Quarter: 2019Q2

REPORT INFORMATION
  Report Type: Spontaneous
  Country: IL (occurrence: IL)
  Receive Date: 20190402
  Receipt Date: 20190402
  Transmission Date: 20190711
  Serious: Yes (Other)
  Sender: FDA-Public Use
  Company Number: IL-TEVA-2019-IL-1032500

PATIENT
  Age: 75 Year
  Sex: Female

DRUGS (10)
  1. CRESTOR [Concomitant]
     Active Substance: ROSUVASTATIN CALCIUM
  2. VASODIP [Concomitant]
     Active Substance: LERCANIDIPINE HYDROCHLORIDE
  3. LOSARDEX [Concomitant]
     Active Substance: LOSARTAN POTASSIUM
  4. INSULIN [Concomitant]
     Active Substance: INSULIN NOS
  5. LAXADINE [Concomitant]
  6. CLONIDINE. [Concomitant]
     Active Substance: CLONIDINE
  7. ACAMOL [Concomitant]
     Active Substance: ACETAMINOPHEN
  8. FLUCONAZOLE TEVA ? 150 MG [Suspect]
     Active Substance: FLUCONAZOLE
     Route: 065
     Dates: start: 20190227
  9. LYRICA [Concomitant]
     Active Substance: PREGABALIN
  10. OPTALGIN [Concomitant]
     Active Substance: METAMIZOLE

REACTIONS (1)
  - Hepatic enzyme increased [Unknown]
